FAERS Safety Report 23341578 (Version 1)
Quarter: 2023Q4

REPORT INFORMATION
  Report Type: Spontaneous
  Country: JP (occurrence: JP)
  Receive Date: 20231227
  Receipt Date: 20231227
  Transmission Date: 20240110
  Serious: Yes (Hospitalization)
  Sender: FDA-Public Use
  Company Number: JP-BAYER-2023A180278

PATIENT
  Age: 81 Year
  Sex: Female
  Weight: 42.4 kg

DRUGS (8)
  1. GADOBUTROL [Suspect]
     Active Substance: GADOBUTROL
     Indication: Magnetic resonance imaging heart
     Dosage: 7.5 ML, ONCE
     Route: 042
     Dates: start: 20231011, end: 20231011
  2. Xarelto OD 10mg [Concomitant]
     Dosage: UNK
     Route: 048
     Dates: start: 20130321, end: 20231102
  3. EPLERENONE [Concomitant]
     Active Substance: EPLERENONE
     Dosage: UNK
     Route: 048
     Dates: start: 20100517
  4. AMLODIPINE BESYLATE\ATORVASTATIN CALCIUM [Concomitant]
     Active Substance: AMLODIPINE BESYLATE\ATORVASTATIN CALCIUM
     Dosage: UNK
     Route: 048
     Dates: start: 20110127, end: 20231102
  5. BEPRIDIL [Concomitant]
     Active Substance: BEPRIDIL
     Dosage: UNK
     Route: 048
     Dates: start: 20100408, end: 20231114
  6. BISOPROLOL FUMARATE [Concomitant]
     Active Substance: BISOPROLOL FUMARATE
     Dosage: UNK
     Route: 048
     Dates: start: 20150326, end: 20231102
  7. BROTIZOLAM [Concomitant]
     Active Substance: BROTIZOLAM
     Dosage: UNK
     Route: 048
     Dates: start: 20120913, end: 20231102
  8. ETIZOLAM [Concomitant]
     Active Substance: ETIZOLAM
     Dosage: UNK
     Route: 048
     Dates: start: 20130502, end: 20231102

REACTIONS (2)
  - Pancytopenia [Recovering/Resolving]
  - Physical deconditioning [None]

NARRATIVE: CASE EVENT DATE: 20231011
